APPROVED DRUG PRODUCT: MITOXANTRONE HYDROCHLORIDE
Active Ingredient: MITOXANTRONE HYDROCHLORIDE
Strength: EQ 30MG BASE/15ML (EQ 2MG BASE/ML)
Dosage Form/Route: INJECTABLE;INJECTION
Application: A077356 | Product #003 | TE Code: AP
Applicant: MEITHEAL PHARMACEUTICALS INC
Approved: Apr 11, 2006 | RLD: No | RS: No | Type: RX